FAERS Safety Report 17666797 (Version 1)
Quarter: 2020Q2

REPORT INFORMATION
  Report Type: Spontaneous
  Country: GB (occurrence: GB)
  Receive Date: 20200414
  Receipt Date: 20200414
  Transmission Date: 20200713
  Serious: Yes (Death)
  Sender: FDA-Public Use
  Company Number: GB-MYLANLABS-2020M1037633

PATIENT
  Age: 84 Year
  Sex: Male

DRUGS (19)
  1. ADCAL D3 [Concomitant]
     Active Substance: CALCIUM CARBONATE\CHOLECALCIFEROL
  2. BISOPROLOL [Concomitant]
     Active Substance: BISOPROLOL
  3. BRALTUS [Concomitant]
     Active Substance: TIOTROPIUM BROMIDE
  4. MIRTAZAPINE. [Concomitant]
     Active Substance: MIRTAZAPINE
  5. NITROFURANTOIN. [Suspect]
     Active Substance: NITROFURANTOIN
     Indication: URINARY TRACT INFECTION
     Dosage: 200 MILLIGRAM, QD
     Route: 048
     Dates: start: 20191125, end: 20191130
  6. NITROFURANTOIN. [Suspect]
     Active Substance: NITROFURANTOIN
     Dosage: 200 MILLIGRAM, QD
     Route: 048
     Dates: start: 20191205
  7. OMEPRAZOLE. [Concomitant]
     Active Substance: OMEPRAZOLE
  8. LORAZEPAM. [Concomitant]
     Active Substance: LORAZEPAM
  9. CHEMYDUR [Concomitant]
     Active Substance: ISOSORBIDE MONONITRATE
  10. DOXYCYCLINE. [Suspect]
     Active Substance: DOXYCYCLINE
     Indication: CHRONIC OBSTRUCTIVE PULMONARY DISEASE
     Route: 048
     Dates: start: 20190812, end: 20190819
  11. FERROUS SULFATE. [Concomitant]
     Active Substance: FERROUS SULFATE
  12. FOLIC ACID. [Concomitant]
     Active Substance: FOLIC ACID
  13. RIVAROXABAN [Concomitant]
     Active Substance: RIVAROXABAN
  14. PARACETAMOL [Concomitant]
     Active Substance: ACETAMINOPHEN
  15. CARBOCISTEINE [Concomitant]
     Active Substance: CARBOCYSTEINE
  16. FUROSEMIDE. [Concomitant]
     Active Substance: FUROSEMIDE
  17. SALBUTAMOL [Concomitant]
     Active Substance: ALBUTEROL
  18. AMOXICILLIN/CLAVULANIC ACID [Suspect]
     Active Substance: AMOXICILLIN\CLAVULANIC ACID
     Indication: URINARY TRACT INFECTION
     Dosage: 500/125
     Route: 048
     Dates: start: 20190925, end: 20191001
  19. DUORESP SPIROMAX [Concomitant]
     Active Substance: BUDESONIDE\FORMOTEROL

REACTIONS (1)
  - Clostridium difficile infection [Fatal]

NARRATIVE: CASE EVENT DATE: 20191227
